FAERS Safety Report 9330598 (Version 1)
Quarter: 2013Q2

REPORT INFORMATION
  Report Type: Report from Study
  Country: AU (occurrence: AU)
  Receive Date: 20130605
  Receipt Date: 20130605
  Transmission Date: 20140414
  Serious: Yes (Other)
  Sender: FDA-Public Use
  Company Number: PHHY2013AU041369

PATIENT
  Age: 33 Year
  Sex: Male

DRUGS (1)
  1. CLOZARIL [Suspect]
     Dosage: 100 MG, UNK
     Dates: start: 20130405, end: 20130419

REACTIONS (2)
  - Troponin increased [Recovered/Resolved]
  - Cardiac disorder [Unknown]
